FAERS Safety Report 6244350-5 (Version None)
Quarter: 2009Q2

REPORT INFORMATION
  Report Type: 
  Country: None (occurrence: None)
  Receive Date: 20090625
  Receipt Date: 20090618
  Transmission Date: 20091009
  Serious: Yes (Other)
  Sender: FDA-Public Use
  Company Number: US-ROCHE-639493

PATIENT
  Sex: Female
  Weight: 97.5 kg

DRUGS (1)
  1. CAPECITABINE [Suspect]
     Indication: BREAST CANCER
     Dosage: TAKEN 3 TABLETS, TWICE DAILY.
     Route: 048
     Dates: start: 20090323, end: 20090601

REACTIONS (1)
  - TERMINAL STATE [None]
